FAERS Safety Report 8909503 (Version 2)
Quarter: 2012Q4

REPORT INFORMATION
  Report Type: Report from Study
  Country: None (occurrence: CA)
  Receive Date: 20121115
  Receipt Date: 20121127
  Transmission Date: 20130627
  Serious: Yes (Hospitalization)
  Sender: FDA-Public Use
  Company Number: CA-EISAI INC-E7389-03223-SOL-CA

PATIENT
  Age: 43 Year
  Sex: Female
  Weight: 64 kg

DRUGS (5)
  1. HALAVEN [Suspect]
     Indication: METASTATIC BREAST CANCER
     Route: 041
     Dates: start: 20121022
  2. METHADONE [Concomitant]
  3. DEXAMETHASONE [Concomitant]
  4. DULOXETINE [Concomitant]
  5. RABEPRAZOLE [Concomitant]

REACTIONS (2)
  - Pancytopenia [Unknown]
  - Mucosal inflammation [Unknown]
